FAERS Safety Report 12142248 (Version 1)
Quarter: 2016Q1

REPORT INFORMATION
  Report Type: Spontaneous
  Country: CO (occurrence: CO)
  Receive Date: 20160303
  Receipt Date: 20160303
  Transmission Date: 20160526
  Serious: Yes (Hospitalization)
  Sender: FDA-Public Use
  Company Number: CO-DSJP-DSU-2016-107875

PATIENT

DRUGS (1)
  1. OLMETEC ANLO 40/10 [Suspect]
     Active Substance: AMLODIPINE BESYLATE\OLMESARTAN MEDOXOMIL
     Indication: PRODUCT USED FOR UNKNOWN INDICATION
     Dosage: 40/10 MG, UNK
     Route: 048
     Dates: start: 2013

REACTIONS (1)
  - Myeloid leukaemia [Not Recovered/Not Resolved]
